FAERS Safety Report 21693976 (Version 1)
Quarter: 2022Q4

REPORT INFORMATION
  Report Type: Spontaneous
  Country: BE (occurrence: BE)
  Receive Date: 20221207
  Receipt Date: 20221207
  Transmission Date: 20230112
  Serious: Yes (Hospitalization)
  Sender: FDA-Public Use
  Company Number: None

PATIENT
  Age: 68 Year
  Sex: Female
  Weight: 72 kg

DRUGS (5)
  1. LETROZOLE [Suspect]
     Active Substance: LETROZOLE
     Indication: Product used for unknown indication
     Dosage: FORM STRENGTH : 2.5 MG , UNIT DOSE : 2.5MG , FREQUENCY TIME :1 DAY
  2. IBRANCE [Suspect]
     Active Substance: PALBOCICLIB
     Indication: Breast cancer metastatic
     Dates: start: 20220127, end: 20220308
  3. FOLIC ACID [Concomitant]
     Active Substance: FOLIC ACID
     Indication: Product used for unknown indication
     Dosage: UNIT DOSE : 0.4 MG , FREQUENCY TIME : 1 DAY
  4. XGEVA [Concomitant]
     Active Substance: DENOSUMAB
     Indication: Product used for unknown indication
     Dosage: UNIT DOSE : 1 DF , FREQUENCY TIME : 1 MONTH
  5. D-vital Forte [Concomitant]
     Indication: Product used for unknown indication
     Dosage: UNIT DOSE ; 1 DF , FREQUENCY TIME : 1 DAY

REACTIONS (8)
  - Psoriasis [Recovering/Resolving]
  - Palmar erythema [Recovering/Resolving]
  - Pruritus [Recovering/Resolving]
  - Skin fissures [Recovering/Resolving]
  - Psoriasis [Recovering/Resolving]
  - Psoriasis [Recovering/Resolving]
  - Pain [Recovering/Resolving]
  - Psoriasis [Recovering/Resolving]

NARRATIVE: CASE EVENT DATE: 20220221
